FAERS Safety Report 10975224 (Version 2)
Quarter: 2015Q2

REPORT INFORMATION
  Report Type: Report from Study
  Country: DE (occurrence: DE)
  Receive Date: 20150401
  Receipt Date: 20150413
  Transmission Date: 20150821
  Serious: Yes (Death, Life-Threatening, Hospitalization)
  Sender: FDA-Public Use
  Company Number: DE-BRISTOL-MYERS SQUIBB COMPANY-BMS-2015-012488

PATIENT
  Age: 76 Year
  Sex: Male
  Weight: 77 kg

DRUGS (7)
  1. CETUXIMAB [Suspect]
     Active Substance: CETUXIMAB
     Indication: HEAD AND NECK CANCER
     Dosage: 493.75 MG, UNK
     Route: 042
     Dates: start: 20120502
  2. DOCETAXEL. [Suspect]
     Active Substance: DOCETAXEL
     Indication: HEAD AND NECK CANCER
     Dosage: 79 MG, UNK
     Route: 042
     Dates: start: 20120502
  3. FLUOROURACIL. [Suspect]
     Active Substance: FLUOROURACIL
     Indication: HEAD AND NECK CANCER
     Dosage: 1975 MG, UNK
     Route: 042
     Dates: start: 20120502
  4. DEXAMETHASONE. [Concomitant]
     Active Substance: DEXAMETHASONE
     Indication: ANTIINFLAMMATORY THERAPY
     Dosage: UNK
     Route: 065
     Dates: start: 20120502, end: 20120502
  5. FENISTIL [Concomitant]
     Active Substance: DIMETHINDENE
     Indication: ANTIALLERGIC THERAPY
     Dosage: UNK
     Route: 065
     Dates: start: 20120502, end: 20120502
  6. CISPLATIN. [Suspect]
     Active Substance: CISPLATIN
     Indication: HEAD AND NECK CANCER
     Dosage: 59.25 MG, UNK
     Route: 042
     Dates: start: 20120502
  7. KEVATRIL [Concomitant]
     Active Substance: GRANISETRON HYDROCHLORIDE
     Indication: ANTIEMETIC SUPPORTIVE CARE
     Dosage: UNK
     Route: 065
     Dates: start: 20120502, end: 20120502

REACTIONS (1)
  - Large intestine perforation [Fatal]

NARRATIVE: CASE EVENT DATE: 20120508
